FAERS Safety Report 9846462 (Version 1)
Quarter: 2014Q1

REPORT INFORMATION
  Report Type: Spontaneous
  Country: US (occurrence: None)
  Receive Date: 20140122
  Receipt Date: 20140122
  Transmission Date: 20141002
  Serious: Yes (Other)
  Sender: FDA-Public Use
  Company Number: CA14-0007

PATIENT
  Sex: Female

DRUGS (1)
  1. ENOXAPARIN SODIUM [Suspect]
     Indication: INJURY ASSOCIATED WITH DEVICE

REACTIONS (3)
  - Injury associated with device [None]
  - Wrong technique in drug usage process [None]
  - Skin haemorrhage [None]
